FAERS Safety Report 5839444-X (Version None)
Quarter: 2008Q3

REPORT INFORMATION
  Report Type: 
  Country: None (occurrence: None)
  Receive Date: 20080807
  Receipt Date: 20080729
  Transmission Date: 20090109
  Serious: Yes (Other)
  Sender: FDA-Public Use
  Company Number: 2008AP001833

PATIENT
  Age: 49 Year
  Sex: Male

DRUGS (3)
  1. APO-LISINOPRIL/HCTZ (HYDROCHLOROTHIAZIDE/LISINOPRIL) [Suspect]
     Indication: HYPERTENSION
     Dosage: 1 TAB; QD PO, 1 TAB; TAB; PO; QD
     Route: 048
     Dates: start: 20080702, end: 20080715
  2. APO-LISINOPRIL/HCTZ (HYDROCHLOROTHIAZIDE/LISINOPRIL) [Suspect]
     Indication: HYPERTENSION
     Dosage: 1 TAB; QD PO, 1 TAB; TAB; PO; QD
     Route: 048
     Dates: start: 20080702, end: 20080715
  3. PRINZIDE [Concomitant]

REACTIONS (2)
  - NASAL DISCOMFORT [None]
  - THROAT IRRITATION [None]
